FAERS Safety Report 4721197-X (Version None)
Quarter: 2005Q3

REPORT INFORMATION
  Report Type: 
  Country: None (occurrence: None)
  Receive Date: 20050722
  Receipt Date: 20050510
  Transmission Date: 20060218
  Serious: Yes (Hospitalization)
  Sender: FDA-Public Use
  Company Number: JP-SP-2005-00906

PATIENT
  Age: 80 Year
  Sex: Female

DRUGS (5)
  1. IMMUCYST [Suspect]
     Indication: BLADDER CANCER
     Route: 043
     Dates: start: 20050316, end: 20050507
  2. IMMUCYST [Suspect]
     Route: 043
     Dates: start: 20050316, end: 20050507
  3. LEVOFLOXACIN [Concomitant]
     Dosage: 300 MG/DAY
     Route: 048
     Dates: start: 20050319, end: 20050504
  4. REBAMIPIDE [Concomitant]
     Dosage: 300 MG/DAY
     Route: 048
     Dates: start: 20050319, end: 20050504
  5. ISONIAZID [Concomitant]
     Dosage: 3 TAB/DAY
     Route: 048
     Dates: start: 20050319, end: 20050504

REACTIONS (11)
  - ARTHRALGIA [None]
  - BACK PAIN [None]
  - BACTERAEMIA [None]
  - BOVINE TUBERCULOSIS [None]
  - DISSEMINATED TUBERCULOSIS [None]
  - HYPERSENSITIVITY [None]
  - MYALGIA [None]
  - NAUSEA [None]
  - PYELONEPHRITIS [None]
  - PYREXIA [None]
  - TACHYCARDIA [None]
